FAERS Safety Report 15074736 (Version 1)
Quarter: 2018Q2

REPORT INFORMATION
  Report Type: Spontaneous
  Country: US (occurrence: US)
  Receive Date: 20180627
  Receipt Date: 20180627
  Transmission Date: 20180711
  Serious: Yes (Other)
  Sender: FDA-Public Use
  Company Number: US-SAOL THERAPEUTICS-2017SAO01158

PATIENT
  Age: 59 Year
  Sex: Male

DRUGS (7)
  1. BACTRIM-DS [Concomitant]
     Dosage: UNK, AS NEEDED
  2. MAGIC BULLET SUPPOSITORY [Concomitant]
     Dosage: UNK UNK, 1X/DAY
     Route: 054
  3. LIORESAL [Suspect]
     Active Substance: BACLOFEN
     Indication: MUSCLE SPASTICITY
     Dosage: 49.97 ?G, \DAY
     Route: 037
  4. LIORESAL [Suspect]
     Active Substance: BACLOFEN
     Dosage: 50 ?G, \DAY
     Route: 037
     Dates: start: 20170623
  5. ASPIRIN. [Concomitant]
     Active Substance: ASPIRIN
     Dosage: 81 MG, 1X/DAY
  6. VIAGRA [Concomitant]
     Active Substance: SILDENAFIL CITRATE
  7. LIORESAL [Suspect]
     Active Substance: BACLOFEN
     Indication: SPINAL CORD INJURY
     Dosage: 47.01 ?G, \DAY
     Route: 037

REACTIONS (4)
  - Haemorrhoids [Not Recovered/Not Resolved]
  - Muscle spasms [Unknown]
  - Muscle spasticity [Recovered/Resolved]
  - Hypertonia [Recovering/Resolving]

NARRATIVE: CASE EVENT DATE: 201706
